FAERS Safety Report 9237974 (Version 1)
Quarter: 2013Q1

REPORT INFORMATION
  Report Type: Spontaneous
  Country: US (occurrence: None)
  Receive Date: 20121106
  Receipt Date: 20121106
  Transmission Date: 20140127
  Serious: Yes (Other)
  Sender: FDA-Public Use
  Company Number: 1000037364

PATIENT
  Sex: Male

DRUGS (1)
  1. DALIRESP [Suspect]
     Indication: CHRONIC OBSTRUCTIVE PULMONARY DISEASE
     Dosage: 500 MCG  ( 500 MCG, 1 IN 1 D) ORAL
     Route: 048
     Dates: end: 201207

REACTIONS (1)
  - Suicidal ideation [None]
